FAERS Safety Report 5374380-7 (Version None)
Quarter: 2007Q2

REPORT INFORMATION
  Report Type: 
  Country: None (occurrence: None)
  Receive Date: 20070629
  Receipt Date: 20060516
  Transmission Date: 20071010
  Serious: No
  Sender: FDA-Public Use
  Company Number: A0605824A

PATIENT
  Age: 43 Year
  Sex: Male

DRUGS (9)
  1. ALBUTEROL [Suspect]
     Indication: RESTRICTIVE PULMONARY DISEASE
     Route: 055
  2. COZAAR [Concomitant]
  3. HYDROCHLOROTHIAZIDE [Concomitant]
  4. PRINIVIL [Concomitant]
  5. KLONOPIN [Concomitant]
  6. OXYCODONE HCL [Concomitant]
  7. NEXIUM [Concomitant]
  8. ASPIRIN [Concomitant]
  9. AMBIEN [Concomitant]

REACTIONS (2)
  - FEELING JITTERY [None]
  - NERVOUSNESS [None]
